FAERS Safety Report 5752823-4 (Version None)
Quarter: 2008Q2

REPORT INFORMATION
  Report Type: 
  Country: None (occurrence: None)
  Receive Date: 20080529
  Receipt Date: 20080519
  Transmission Date: 20081010
  Serious: Yes (Hospitalization)
  Sender: FDA-Public Use
  Company Number: JP-PFIZER INC-2008040955

PATIENT
  Sex: Female

DRUGS (9)
  1. EPLERENONE [Suspect]
     Indication: HYPERTENSION
     Route: 048
     Dates: start: 20080115, end: 20080421
  2. ATELEC [Concomitant]
     Route: 048
  3. OLMETEC [Concomitant]
     Route: 048
  4. FLUITRAN [Concomitant]
     Route: 048
  5. LANIRAPID [Concomitant]
     Route: 048
  6. DEPAS [Concomitant]
     Route: 048
  7. BUP-4 [Concomitant]
     Route: 048
  8. ASPIRIN [Concomitant]
     Route: 048
  9. HOCHUUEKKITOU [Concomitant]
     Route: 048
     Dates: start: 20060801

REACTIONS (4)
  - ANOREXIA [None]
  - HEPATIC FUNCTION ABNORMAL [None]
  - JAUNDICE [None]
  - VOMITING [None]
